FAERS Safety Report 5391031-6 (Version None)
Quarter: 2007Q3

REPORT INFORMATION
  Report Type: 
  Country: None (occurrence: None)
  Receive Date: 20070717
  Receipt Date: 20070710
  Transmission Date: 20080115
  Serious: Yes (Other)
  Sender: FDA-Public Use
  Company Number: E2020-01137-CLI-US

PATIENT
  Age: 77 Year
  Sex: Male
  Weight: 67 kg

DRUGS (20)
  1. DONEPEZIL HCL [Suspect]
     Indication: COGNITIVE DISORDER
     Dosage: 5 MG, 1 IN 1 D, ORAL ; 10 MG, 1 IN 1 D, ORAL
     Route: 048
     Dates: start: 20061026, end: 20061207
  2. DONEPEZIL HCL [Suspect]
     Indication: COGNITIVE DISORDER
     Dosage: 5 MG, 1 IN 1 D, ORAL ; 10 MG, 1 IN 1 D, ORAL
     Route: 048
     Dates: start: 20061208
  3. AMOXICILLIN W/CLAVULANATE POTASSIUM (AMOXICILLIN W/CLAVULANATE POTASSI [Concomitant]
  4. ZETIA [Concomitant]
  5. FLONASE [Concomitant]
  6. MULTIVITAMIN [Concomitant]
  7. CIALIS [Concomitant]
  8. ASPIRIN [Concomitant]
  9. PRAVACHOL [Concomitant]
  10. GLUCOSAMINE W/CHONDROITIN (GLUCOSAMINE W/CHONDROITIN SULFATES) [Concomitant]
  11. LEVITRA [Concomitant]
  12. UROXATRAL [Concomitant]
  13. CICLOPIROX (CICLOPIROX) [Concomitant]
  14. SALEX (SALICYCLIC ACID) [Concomitant]
  15. FLOMAX [Concomitant]
  16. ENABLEX ER [Concomitant]
  17. SCOPOLAMINE PATCH (HYOSCINE) [Concomitant]
  18. MECLIZINE [Concomitant]
  19. LEVAQUIN [Concomitant]
  20. PROQUIN XR (CIPROFLOXACIN HYDROCHLORIDE) [Concomitant]

REACTIONS (1)
  - PROSTATE CANCER [None]
